FAERS Safety Report 6465221-5 (Version None)
Quarter: 2009Q4

REPORT INFORMATION
  Report Type: 
  Country: None (occurrence: None)
  Receive Date: 20091124
  Receipt Date: 20091110
  Transmission Date: 20100525
  Serious: Yes (Life-Threatening)
  Sender: FDA-Public Use
  Company Number: 005852

PATIENT
  Age: 83 Year
  Sex: Female

DRUGS (7)
  1. PLETAL [Suspect]
     Indication: ARTERIOSCLEROSIS OBLITERANS
     Dosage: 50 MG, BID; ORAL
     Route: 048
     Dates: start: 20080515, end: 20081209
  2. PLETAL [Suspect]
     Indication: ARTERIOSCLEROSIS OBLITERANS
     Dosage: 50 MG, BID; ORAL
     Route: 048
     Dates: start: 20090211
  3. PRAVASTATIN [Concomitant]
  4. DIOVAN [Concomitant]
  5. CALBLOCK (AZELNIDIPINE) TABLET [Concomitant]
  6. SERMION (NICERGOLINE) [Concomitant]
  7. BENET (SODIUM RISEDRONATE HYDRATE) TABLET [Concomitant]

REACTIONS (1)
  - THROMBOCYTOPENIA [None]
